FAERS Safety Report 12932933 (Version 2)
Quarter: 2017Q1

REPORT INFORMATION
  Report Type: Spontaneous
  Country: US (occurrence: US)
  Receive Date: 20161111
  Receipt Date: 20170225
  Transmission Date: 20170428
  Serious: Yes (Death, Other)
  Sender: FDA-Public Use
  Company Number: US-BRISTOL-MYERS SQUIBB COMPANY-BMS-2016-094118

PATIENT
  Sex: Female

DRUGS (2)
  1. OPDIVO [Suspect]
     Active Substance: NIVOLUMAB
     Indication: CERVIX CARCINOMA
     Dosage: YERVOY 190 MG, OPDIVO 65 MG
     Route: 042
     Dates: start: 20161020
  2. YERVOY [Suspect]
     Active Substance: IPILIMUMAB
     Indication: CERVIX CARCINOMA
     Dosage: UNK
     Route: 042
     Dates: start: 20161020

REACTIONS (2)
  - Product use issue [Unknown]
  - Malignant neoplasm progression [Fatal]
